FAERS Safety Report 4936749-1 (Version None)
Quarter: 2006Q1

REPORT INFORMATION
  Report Type: 
  Country: None (occurrence: None)
  Receive Date: 20060306
  Receipt Date: 20060215
  Transmission Date: 20060701
  Serious: Yes (Life-Threatening, Hospitalization)
  Sender: FDA-Public Use
  Company Number: HQWYE724429NOV05

PATIENT
  Sex: Male

DRUGS (2)
  1. MINOCIN [Suspect]
     Indication: ENTERITIS INFECTIOUS
     Dosage: 200 MG DAILY PO
     Route: 048
     Dates: start: 20051121, end: 20051121
  2. BIOFERMIN R (STREPTOCOCCUS FAECALIS) [Concomitant]

REACTIONS (3)
  - CYANOSIS [None]
  - SEPTIC SHOCK [None]
  - WHITE BLOOD CELL COUNT DECREASED [None]
